FAERS Safety Report 6345473-2 (Version None)
Quarter: 2009Q3

REPORT INFORMATION
  Report Type: 
  Country: None (occurrence: None)
  Receive Date: 20090909
  Receipt Date: 20090828
  Transmission Date: 20100115
  Serious: Yes (Death, Life-Threatening, Hospitalization)
  Sender: FDA-Public Use
  Company Number: US-BRISTOL-MYERS SQUIBB COMPANY-14760839

PATIENT
  Age: 69 Year
  Sex: Female
  Weight: 89 kg

DRUGS (13)
  1. CETUXIMAB [Suspect]
     Indication: NON-SMALL CELL LUNG CANCER
     Dosage: RECENT INFUSION:05AUG09 DISCONTINUED ON 10AUG09
     Route: 042
     Dates: start: 20090708, end: 20090805
  2. PACLITAXEL [Suspect]
     Indication: NON-SMALL CELL LUNG CANCER
     Dosage: RECENT INFUSION:29JUL09(2ND) DISCONTINUED ON 10AUG09
     Route: 042
     Dates: start: 20090708, end: 20090729
  3. CARBOPLATIN [Suspect]
     Indication: NON-SMALL CELL LUNG CANCER
     Dosage: RECENT INFUSION:29JUL09(2ND) DISCONTINUED ON 10AUG09
     Route: 042
     Dates: start: 20090708, end: 20090729
  4. FEXOFENADINE HCL [Concomitant]
     Route: 065
  5. LOPID [Concomitant]
     Route: 065
  6. POTASSIUM CHLORIDE [Concomitant]
     Route: 065
  7. METOPROLOL [Concomitant]
     Route: 065
  8. FUROSEMIDE [Concomitant]
     Route: 065
  9. ASPIRIN [Concomitant]
     Route: 065
  10. METHOCARBAMOL [Concomitant]
     Route: 065
  11. GUANFACINE HYDROCHLORIDE [Concomitant]
     Route: 065
  12. PRILOSEC [Concomitant]
     Route: 065
  13. LORATADINE [Concomitant]
     Route: 065

REACTIONS (2)
  - RESPIRATORY FAILURE [None]
  - SEPSIS [None]
